FAERS Safety Report 6677367-7 (Version None)
Quarter: 2010Q2

REPORT INFORMATION
  Report Type: 
  Country: None (occurrence: None)
  Receive Date: 20100412
  Receipt Date: 20100407
  Transmission Date: 20101027
  Serious: Yes (Other)
  Sender: FDA-Public Use
  Company Number: GB-WYE-H04197708

PATIENT
  Age: 67 Year
  Sex: Male

DRUGS (9)
  1. AMIODARONE HCL [Suspect]
     Indication: ATRIAL FLUTTER
     Route: 048
     Dates: start: 20060201
  2. ARYTHMOL [Interacting]
     Indication: ATRIAL FLUTTER
  3. THYROXIN [Concomitant]
  4. CANDESARTAN [Concomitant]
  5. DIGOXIN [Concomitant]
     Dates: end: 20060609
  6. WARFARIN [Interacting]
     Dosage: 5 MG 3 DAYS/WEEK/6 MG 4 DAYS/WEEK
     Dates: start: 20010101, end: 20060201
  7. WARFARIN [Interacting]
     Dosage: 4 MG 3 DAYS/WEEK/3 MG 4 DAYS/WEEK
     Dates: start: 20060201, end: 20060501
  8. WARFARIN [Interacting]
     Dates: start: 20060501
  9. ATORVASTATIN CALCIUM [Concomitant]

REACTIONS (4)
  - DRUG INEFFECTIVE [None]
  - DRUG INTERACTION [None]
  - HYPOTHYROIDISM [None]
  - INTERNATIONAL NORMALISED RATIO INCREASED [None]
